FAERS Safety Report 8989083 (Version 1)
Quarter: 2012Q4

REPORT INFORMATION
  Report Type: Spontaneous
  Country: CA (occurrence: None)
  Receive Date: 20121219
  Receipt Date: 20121219
  Transmission Date: 20130627
  Serious: Yes (Death)
  Sender: FDA-Public Use
  Company Number: 1529303

PATIENT

DRUGS (1)
  1. MORPHINE SULFATE [Suspect]
     Dosage: 1MG, LOCKOUT: 8 MINUTES AND 4 HRS

REACTIONS (1)
  - Death [None]
